FAERS Safety Report 18221412 (Version 1)
Quarter: 2020Q3

REPORT INFORMATION
  Report Type: Spontaneous
  Country: US (occurrence: US)
  Receive Date: 20200902
  Receipt Date: 20200902
  Transmission Date: 20201103
  Serious: No
  Sender: FDA-Public Use
  Company Number: US-PFIZER INC-2020337659

PATIENT
  Age: 61 Year
  Sex: Male

DRUGS (1)
  1. INLYTA [Suspect]
     Active Substance: AXITINIB
     Indication: RENAL CANCER
     Dosage: UNK
     Dates: end: 2020

REACTIONS (4)
  - Eating disorder [Recovering/Resolving]
  - Oral discomfort [Recovering/Resolving]
  - Oral mucosal erythema [Recovering/Resolving]
  - Dysphagia [Recovering/Resolving]
